FAERS Safety Report 8515467-7 (Version None)
Quarter: 2012Q3

REPORT INFORMATION
  Report Type: 
  Country: None (occurrence: None)
  Receive Date: 20120717
  Receipt Date: 20120706
  Transmission Date: 20120928
  Serious: Yes (Other)
  Sender: FDA-Public Use
  Company Number: US-ELI_LILLY_AND_COMPANY-US201207002658

PATIENT
  Sex: Female

DRUGS (4)
  1. LEVOTHYROXINE SODIUM [Concomitant]
     Dosage: UNK, UNKNOWN
  2. HUMATROPE [Suspect]
     Indication: HYPOPITUITARISM
     Dosage: 0.3 MG, QD
     Dates: start: 20110901
  3. DESMOPRESSIN ACETATE [Concomitant]
     Dosage: UNK, UNKNOWN
  4. FOLIC ACID [Concomitant]
     Dosage: UNK, UNKNOWN

REACTIONS (1)
  - NEOPLASM RECURRENCE [None]
